FAERS Safety Report 7070283-0 (Version None)
Quarter: 2010Q4

REPORT INFORMATION
  Report Type: 
  Country: None (occurrence: None)
  Receive Date: 20101028
  Receipt Date: 20101011
  Transmission Date: 20110411
  Serious: No
  Sender: FDA-Public Use
  Company Number: US-WYE-H18128010

PATIENT
  Age: 56 Year
  Sex: Male
  Weight: 78.09 kg

DRUGS (2)
  1. ADVIL [Suspect]
     Indication: PAIN
     Dosage: 2 CAPS 4-6 HOURS
     Route: 048
     Dates: start: 20100913, end: 20101010
  2. ADVIL PM [Concomitant]
     Dosage: UNKNOWN
     Route: 048
     Dates: end: 20101004

REACTIONS (1)
  - ABDOMINAL PAIN UPPER [None]
